FAERS Safety Report 6050658-9 (Version None)
Quarter: 2009Q1

REPORT INFORMATION
  Report Type: 
  Country: None (occurrence: None)
  Receive Date: 20090121
  Receipt Date: 20090102
  Transmission Date: 20090719
  Serious: Yes (Other)
  Sender: FDA-Public Use
  Company Number: 8041042

PATIENT
  Age: 26 Year
  Sex: Female

DRUGS (8)
  1. PREDNISOLONE [Suspect]
     Indication: IMMUNOSUPPRESSION
     Dosage: 20 MG /D
  2. AZATHIOPRINE [Suspect]
     Indication: IMMUNOSUPPRESSION
     Dosage: 1.5 MG/KG /D
  3. AZATHIOPRINE [Suspect]
     Indication: IMMUNOSUPPRESSION
  4. AZATHIOPRINE [Suspect]
     Indication: IMMUNOSUPPRESSION
     Dosage: 1 MG/KG /D
  5. CYCLOSPORINE [Suspect]
     Indication: IMMUNOSUPPRESSION
  6. COTRIM [Suspect]
     Indication: INFECTION PROPHYLAXIS
  7. TACROLIMUS [Suspect]
     Indication: IMMUNOSUPPRESSION
  8. SIROLIMUS [Suspect]

REACTIONS (13)
  - CATHETER RELATED INFECTION [None]
  - COLITIS [None]
  - COMPLICATIONS OF TRANSPLANTED KIDNEY [None]
  - DRUG INTOLERANCE [None]
  - ENTEROCOCCAL INFECTION [None]
  - HAEMOGLOBIN DECREASED [None]
  - IMMUNOSUPPRESSANT DRUG LEVEL DECREASED [None]
  - LEUKOPENIA [None]
  - PERITONEAL DIALYSIS COMPLICATION [None]
  - PERITONITIS BACTERIAL [None]
  - RENAL INFARCT [None]
  - RENAL TRANSPLANT [None]
  - THROMBOTIC MICROANGIOPATHY [None]
